FAERS Safety Report 23630501 (Version 2)
Quarter: 2024Q2

REPORT INFORMATION
  Report Type: Report from Study
  Country: US (occurrence: US)
  Receive Date: 20240314
  Receipt Date: 20240413
  Transmission Date: 20240716
  Serious: Yes (Other)
  Sender: FDA-Public Use
  Company Number: US-ABBVIE-5676551

PATIENT
  Sex: Female

DRUGS (1)
  1. SKYRIZI [Suspect]
     Active Substance: RISANKIZUMAB-RZAA
     Indication: Psoriasis
     Dosage: 150 MILLIGRAM
     Route: 058
     Dates: start: 20231012

REACTIONS (5)
  - Device leakage [Not Recovered/Not Resolved]
  - COVID-19 [Recovered/Resolved]
  - Rash [Recovering/Resolving]
  - Breast mass [Recovering/Resolving]
  - Mastitis [Recovering/Resolving]

NARRATIVE: CASE EVENT DATE: 20240101
